FAERS Safety Report 24919233 (Version 1)
Quarter: 2025Q1

REPORT INFORMATION
  Report Type: Spontaneous
  Country: JP (occurrence: JP)
  Receive Date: 20250204
  Receipt Date: 20250204
  Transmission Date: 20250409
  Serious: Yes (Other)
  Sender: NOVARTIS
  Company Number: JP-002147023-NVSJ2025JP001524

PATIENT
  Age: 13 Year
  Sex: Male

DRUGS (2)
  1. PAZOPANIB [Suspect]
     Active Substance: PAZOPANIB
     Indication: Osteosarcoma
     Route: 065
  2. PAZOPANIB [Suspect]
     Active Substance: PAZOPANIB
     Route: 065

REACTIONS (2)
  - Pneumothorax [Recovering/Resolving]
  - Off label use [Unknown]
